FAERS Safety Report 16526444 (Version 1)
Quarter: 2019Q3

REPORT INFORMATION
  Report Type: Spontaneous
  Country: US (occurrence: US)
  Receive Date: 20190703
  Receipt Date: 20190703
  Transmission Date: 20191004
  Serious: Yes (Other)
  Sender: FDA-Public Use
  Company Number: US-BAYER-2019-122026

PATIENT

DRUGS (3)
  1. ACETYLSALICYLIC ACID (PAIN AND FEVER) [Suspect]
     Active Substance: ASPIRIN
     Dosage: UNK
  2. ALEVE [Suspect]
     Active Substance: NAPROXEN SODIUM
     Dosage: UNK
  3. PREMARIN [Concomitant]
     Active Substance: ESTROGENS, CONJUGATED
     Dosage: UNK

REACTIONS (8)
  - Respiratory arrest [Unknown]
  - Loss of consciousness [Unknown]
  - Anaphylactic reaction [Unknown]
  - Urticaria [Unknown]
  - Drug hypersensitivity [Unknown]
  - Swelling [Unknown]
  - Pruritus [Unknown]
  - Drug hypersensitivity [Unknown]

NARRATIVE: CASE EVENT DATE: 20030122
